FAERS Safety Report 9817333 (Version 2)
Quarter: 2014Q2

REPORT INFORMATION
  Report Type: Report from Study
  Country: DE (occurrence: DE)
  Receive Date: 20140115
  Receipt Date: 20140421
  Transmission Date: 20141212
  Serious: Yes (Hospitalization)
  Sender: FDA-Public Use
  Company Number: DE-ROCHE-1331325

PATIENT
  Age: 66 Year
  Sex: Male

DRUGS (8)
  1. RITUXIMAB [Suspect]
     Indication: RHEUMATOID ARTHRITIS
     Dosage: LAST DOCUMENTED ADMINISTRATION OF 500 MG RITUXIMAB WAS ON 12-MAR-2013
     Route: 065
  2. METHOTREXATE [Suspect]
     Indication: RHEUMATOID ARTHRITIS
     Route: 065
  3. PREDNISOLON [Concomitant]
  4. ARCOXIA [Concomitant]
  5. RAMIPRIL [Concomitant]
  6. FOLIC ACID [Concomitant]
  7. BISOPROLOL [Concomitant]
  8. CLEXANE [Concomitant]

REACTIONS (3)
  - Cholecystitis [Recovered/Resolved]
  - Abdominal pain [Recovered/Resolved]
  - Cholelithiasis [Recovered/Resolved]
